FAERS Safety Report 5740182-2 (Version None)
Quarter: 2008Q2

REPORT INFORMATION
  Report Type: 
  Country: None (occurrence: None)
  Receive Date: 20080516
  Receipt Date: 20080513
  Transmission Date: 20081010
  Serious: Yes (Death, Hospitalization, Other)
  Sender: FDA-Public Use
  Company Number: FR-BRISTOL-MYERS SQUIBB COMPANY-14191423

PATIENT
  Age: 60 Year
  Sex: Male

DRUGS (6)
  1. COAPROVEL TABS [Suspect]
     Indication: HYPERTENSION
  2. ZANTAC [Suspect]
  3. MOPRAL [Suspect]
  4. LORAZEPAM [Concomitant]
  5. ZOPICLONE [Concomitant]
  6. SERETIDE [Concomitant]

REACTIONS (6)
  - ACUTE RESPIRATORY DISTRESS SYNDROME [None]
  - GENERAL PHYSICAL HEALTH DETERIORATION [None]
  - HEPATORENAL SYNDROME [None]
  - MULTI-ORGAN FAILURE [None]
  - RENAL FAILURE ACUTE [None]
  - SHOCK [None]
